FAERS Safety Report 19882415 (Version 1)
Quarter: 2021Q3

REPORT INFORMATION
  Report Type: Report from Study
  Country: CO (occurrence: CO)
  Receive Date: 20210925
  Receipt Date: 20210925
  Transmission Date: 20211014
  Serious: Yes (Other)
  Sender: FDA-Public Use
  Company Number: NVSC2021CO173770

PATIENT
  Age: 59 Year
  Sex: Female
  Weight: 72 kg

DRUGS (4)
  1. COSENTYX [Suspect]
     Active Substance: SECUKINUMAB
     Dosage: 150 MG, QMO
     Route: 058
     Dates: end: 202104
  2. OMEPRAZOLE. [Concomitant]
     Active Substance: OMEPRAZOLE
     Indication: CHRONIC GASTRITIS
     Dosage: 40 MG (TABLET OF 20 MG), QD (20 YEARS AGO)
     Route: 048
  3. LEVOTHYROXINE. [Concomitant]
     Active Substance: LEVOTHYROXINE
     Indication: HYPOTHYROIDISM
     Dosage: 75 MG, QD (4 YEARS AGO)
     Route: 048
  4. COSENTYX [Suspect]
     Active Substance: SECUKINUMAB
     Indication: ANKYLOSING SPONDYLITIS
     Dosage: 150 MG, QMO
     Route: 058
     Dates: start: 2018

REACTIONS (6)
  - Blood glucose increased [Unknown]
  - Fatigue [Recovered/Resolved]
  - Choking [Unknown]
  - SARS-CoV-2 test positive [Recovered/Resolved with Sequelae]
  - Weight increased [Unknown]
  - Product supply issue [Unknown]

NARRATIVE: CASE EVENT DATE: 20210621
